FAERS Safety Report 4398204-X (Version None)
Quarter: 2004Q3

REPORT INFORMATION
  Report Type: 
  Country: None (occurrence: None)
  Receive Date: 20040714
  Receipt Date: 20040714
  Transmission Date: 20050211
  Serious: Yes (Life-Threatening, Hospitalization)
  Sender: FDA-Public Use
  Company Number: None

PATIENT
  Age: 56 Year
  Sex: Male
  Weight: 71.2 kg

DRUGS (13)
  1. ZOCOR [Suspect]
     Indication: HYPERCHOLESTEROLAEMIA
     Dosage: 80 MG PO DAILY
     Route: 048
  2. ALLOPURINOL [Concomitant]
  3. NORVASC [Concomitant]
  4. ASPIRIN [Concomitant]
  5. CALCITRIOL [Concomitant]
  6. PLAVIX [Concomitant]
  7. FLEXERIL [Concomitant]
  8. LASIX [Concomitant]
  9. NOVOLIN 70/30 [Concomitant]
  10. LISINOPRIL [Concomitant]
  11. METOPROLOL [Concomitant]
  12. PREDNISONE [Concomitant]
  13. EPOGEN [Concomitant]

REACTIONS (2)
  - DIALYSIS [None]
  - RHABDOMYOLYSIS [None]
